FAERS Safety Report 8447509-1 (Version None)
Quarter: 2012Q2

REPORT INFORMATION
  Report Type: 
  Country: None (occurrence: None)
  Receive Date: 20120612
  Receipt Date: 20120601
  Transmission Date: 20120825
  Serious: Yes (Other)
  Sender: FDA-Public Use
  Company Number: 2012MA006854

PATIENT

DRUGS (4)
  1. NYSTATIN [Suspect]
     Indication: OROPHARYNGEAL PAIN
  2. NYSTATIN [Suspect]
     Indication: OESOPHAGEAL CANDIDIASIS
  3. WARFARIN SODIUM [Suspect]
     Indication: HEART VALVE REPLACEMENT
  4. WARFARIN SODIUM [Suspect]
     Indication: EMBOLISM VENOUS

REACTIONS (2)
  - INTERNATIONAL NORMALISED RATIO INCREASED [None]
  - HAEMATURIA [None]
